FAERS Safety Report 21547263 (Version 1)
Quarter: 2022Q4

REPORT INFORMATION
  Report Type: Spontaneous
  Country: US (occurrence: None)
  Receive Date: 20221101
  Receipt Date: 20221101
  Transmission Date: 20230113
  Serious: Yes (Hospitalization)
  Sender: FDA-Public Use
  Company Number: None

PATIENT

DRUGS (2)
  1. POTASSIUM [Suspect]
     Active Substance: POTASSIUM
  2. LISINOPRIL [Suspect]
     Active Substance: LISINOPRIL

REACTIONS (4)
  - Blood urea increased [None]
  - Hypervolaemia [None]
  - Hyperkalaemia [None]
  - Acute kidney injury [None]

NARRATIVE: CASE EVENT DATE: 20210315
